FAERS Safety Report 25066652 (Version 2)
Quarter: 2025Q1

REPORT INFORMATION
  Report Type: Other
  Country: ES (occurrence: ES)
  Receive Date: 20250312
  Receipt Date: 20250327
  Transmission Date: 20250408
  Serious: Yes (Hospitalization, Other)
  Sender: ALVOGEN
  Company Number: ES-ALVOGEN-2025096460

PATIENT
  Age: 12 Year
  Sex: Female

DRUGS (2)
  1. VORICONAZOLE [Suspect]
     Active Substance: VORICONAZOLE
     Indication: Aspergillus infection
     Route: 042
  2. VORICONAZOLE [Suspect]
     Active Substance: VORICONAZOLE
     Indication: Aspergillus infection
     Route: 042

REACTIONS (4)
  - Neurotoxicity [Unknown]
  - Hallucination, visual [Unknown]
  - Agitation [Unknown]
  - Photopsia [Unknown]
